FAERS Safety Report 16846648 (Version 2)
Quarter: 2019Q4

REPORT INFORMATION
  Report Type: Spontaneous
  Country: US (occurrence: US)
  Receive Date: 20190924
  Receipt Date: 20191011
  Transmission Date: 20200122
  Serious: No
  Sender: FDA-Public Use
  Company Number: US-AMGEN-USASP2019154081

PATIENT
  Sex: Female

DRUGS (1)
  1. PROLIA [Suspect]
     Active Substance: DENOSUMAB
     Indication: OSTEOPOROSIS POSTMENOPAUSAL
     Dosage: UNK
     Route: 065
     Dates: start: 201906, end: 2019

REACTIONS (8)
  - Oral mucosal eruption [Unknown]
  - Vulvovaginal burning sensation [Unknown]
  - Abdominal pain upper [Unknown]
  - Foreign body sensation in eyes [Unknown]
  - Bone pain [Unknown]
  - Nausea [Unknown]
  - Fatigue [Unknown]
  - Hypersomnia [Unknown]

NARRATIVE: CASE EVENT DATE: 2019
